FAERS Safety Report 6553803-1 (Version None)
Quarter: 2010Q1

REPORT INFORMATION
  Report Type: 
  Country: None (occurrence: None)
  Receive Date: 20100122
  Receipt Date: 20100106
  Transmission Date: 20100710
  Serious: Yes (Death)
  Sender: FDA-Public Use
  Company Number: 2009AC000495

PATIENT
  Age: 56 Year
  Sex: Male
  Weight: 85.7298 kg

DRUGS (20)
  1. DIGOXIN [Suspect]
     Dosage: .125 MG; QOD; PO
     Route: 048
     Dates: start: 20080915
  2. AMIODARONE HCL [Concomitant]
  3. COREG [Concomitant]
  4. LIPITOR [Concomitant]
  5. ASPIRIN [Concomitant]
  6. KLOR-CON [Concomitant]
  7. TORSEMIDE [Concomitant]
  8. METOLAZONE [Concomitant]
  9. NIASPAN [Concomitant]
  10. CARAFATE [Concomitant]
  11. PACERONE [Concomitant]
  12. NEXIUM [Concomitant]
  13. LASIX [Concomitant]
  14. LIPITOR [Concomitant]
  15. ASPIRIN [Concomitant]
  16. TORSEMIDE [Concomitant]
  17. NIASPAN [Concomitant]
  18. SPIRONOLACTONE [Concomitant]
  19. FUROSEMIDE [Concomitant]
  20. DULCOLAX [Concomitant]

REACTIONS (19)
  - ACUTE RESPIRATORY FAILURE [None]
  - ANXIETY [None]
  - APNOEA [None]
  - CARDIAC FAILURE CONGESTIVE [None]
  - CONDITION AGGRAVATED [None]
  - CORONARY ARTERY DISEASE [None]
  - ECONOMIC PROBLEM [None]
  - HAEMATURIA [None]
  - HYPOCALCAEMIA [None]
  - HYPONATRAEMIA [None]
  - INJURY [None]
  - PAIN [None]
  - RENAL FAILURE [None]
  - RENAL FAILURE ACUTE [None]
  - SEPSIS [None]
  - SNORING [None]
  - THROMBOCYTOPENIA [None]
  - VENTRICULAR FIBRILLATION [None]
  - VENTRICULAR TACHYCARDIA [None]
